FAERS Safety Report 10010505 (Version 1)
Quarter: 2014Q1

REPORT INFORMATION
  Report Type: Spontaneous
  Country: US (occurrence: US)
  Receive Date: 20140314
  Receipt Date: 20140314
  Transmission Date: 20141002
  Serious: No
  Sender: FDA-Public Use
  Company Number: US-009507513-1403USA002401

PATIENT
  Sex: Female
  Weight: 49.89 kg

DRUGS (3)
  1. IMPLANON [Suspect]
     Indication: CONTRACEPTION
     Dosage: LEFT UPPER ARM
     Route: 059
     Dates: start: 20110308
  2. CITALOPRAM [Concomitant]
  3. CLONAZEPAM [Concomitant]

REACTIONS (5)
  - Vulvovaginal swelling [Not Recovered/Not Resolved]
  - Abdominal pain [Not Recovered/Not Resolved]
  - Vaginal discharge [Not Recovered/Not Resolved]
  - Gait disturbance [Not Recovered/Not Resolved]
  - Headache [Not Recovered/Not Resolved]
